FAERS Safety Report 25811618 (Version 1)
Quarter: 2025Q3

REPORT INFORMATION
  Report Type: Spontaneous
  Country: EU (occurrence: EU)
  Receive Date: 20250917
  Receipt Date: 20250917
  Transmission Date: 20251021
  Serious: Yes (Death, Hospitalization, Other)
  Sender: ROCHE
  Company Number: None

PATIENT
  Age: 58 Year
  Sex: Male

DRUGS (9)
  1. VENETOCLAX [Suspect]
     Active Substance: VENETOCLAX
     Indication: Chronic lymphocytic leukaemia
     Route: 048
     Dates: start: 202108, end: 202308
  2. OBINUTUZUMAB [Suspect]
     Active Substance: OBINUTUZUMAB
     Indication: Chronic lymphocytic leukaemia
     Route: 065
     Dates: start: 202108
  3. EPCORITAMAB [Suspect]
     Active Substance: EPCORITAMAB
     Indication: Chronic lymphocytic leukaemia
     Route: 058
     Dates: start: 20240725
  4. CYCLOPHOSPHAMIDE\DOXORUBICIN\PREDNISONE\RITUXIMAB\VINCRISTINE [Concomitant]
     Active Substance: CYCLOPHOSPHAMIDE\DOXORUBICIN\PREDNISONE\RITUXIMAB\VINCRISTINE
     Indication: Product used for unknown indication
     Dates: start: 20240603
  5. Busulfan;Fludarabine [Concomitant]
     Indication: Product used for unknown indication
     Dates: start: 20240704, end: 20240712
  6. MYCOPHENOLATE MOFETIL [Concomitant]
     Active Substance: MYCOPHENOLATE MOFETIL
     Indication: Product used for unknown indication
  7. TACROLIMUS [Concomitant]
     Active Substance: TACROLIMUS
     Indication: Product used for unknown indication
     Dates: start: 20240711
  8. PREDNISOLONE [Concomitant]
     Active Substance: PREDNISOLONE
     Indication: Product used for unknown indication
  9. RUXOLITINIB [Concomitant]
     Active Substance: RUXOLITINIB
     Indication: Product used for unknown indication

REACTIONS (26)
  - Death [Fatal]
  - Night sweats [Unknown]
  - Pain in extremity [Unknown]
  - Lymphadenopathy [Unknown]
  - Peripheral swelling [Unknown]
  - Lymphoma [Unknown]
  - Haemophagocytic lymphohistiocytosis [Unknown]
  - Mucosal inflammation [Unknown]
  - Febrile bone marrow aplasia [Unknown]
  - Immune effector cell-associated neurotoxicity syndrome [Unknown]
  - Graft versus host disease in gastrointestinal tract [Unknown]
  - Gastrointestinal haemorrhage [Unknown]
  - Acute kidney injury [Unknown]
  - Disease progression [Unknown]
  - Cytopenia [Unknown]
  - Febrile neutropenia [Unknown]
  - Hyperkalaemia [Unknown]
  - Gastrointestinal disorder [Unknown]
  - Ileus paralytic [Unknown]
  - Melaena [Unknown]
  - Faecal occult blood positive [Unknown]
  - Haematemesis [Unknown]
  - Infection [Recovering/Resolving]
  - Splenomegaly [Unknown]
  - Richter^s syndrome [Unknown]
  - Drug ineffective [Unknown]

NARRATIVE: CASE EVENT DATE: 20250119
